FAERS Safety Report 4307455-1 (Version None)
Quarter: 2004Q1

REPORT INFORMATION
  Report Type: 
  Country: None (occurrence: None)
  Receive Date: 20040226
  Receipt Date: 20040216
  Transmission Date: 20041129
  Serious: Yes (Hospitalization)
  Sender: FDA-Public Use
  Company Number: 2004010370

PATIENT
  Age: 77 Year
  Sex: Male

DRUGS (5)
  1. ZITHROMAX [Suspect]
     Indication: COUGH
     Dosage: 500 MG, ORAL
     Route: 048
     Dates: start: 20040107, end: 20040109
  2. CEFCAPENE PIVOXIL HYDROCHLORIDE [Suspect]
     Indication: COUGH
     Dosage: 300 MG, ORAL
     Route: 048
     Dates: start: 20040109
  3. LOXOPROFEN SODIUM (LOXOPROFEN SODIUM) [Suspect]
     Indication: COUGH
     Dosage: 180 MG, ORAL
     Route: 048
     Dates: start: 20040107, end: 20040110
  4. ACETYLCYSTEINE [Concomitant]
  5. HUSCODE (CHLORPHENAMINE MALEATE, METHYLEPHEDRINE HYDROCHLORIDE-DL, DIH [Concomitant]

REACTIONS (2)
  - FALL [None]
  - RHABDOMYOLYSIS [None]
